FAERS Safety Report 8382400-0 (Version None)
Quarter: 2012Q1

REPORT INFORMATION
  Report Type: 
  Country: None (occurrence: None)
  Receive Date: 20120323
  Receipt Date: 20110624
  Transmission Date: 20120608
  Serious: Yes (Hospitalization)
  Sender: FDA-Public Use
  Company Number: 163-21880-11051708

PATIENT
  Age: 66 Year
  Sex: Female

DRUGS (18)
  1. NEURONTIN [Concomitant]
  2. OXYCODONE HCL [Concomitant]
  3. REVLIMID [Suspect]
     Indication: MULTIPLE MYELOMA
     Dosage: 25 MG, DAILY FOR 21 DAYS, PO, 5 MG, DAILY FOR 28 DAYS, PO
     Route: 048
     Dates: start: 20090108
  4. FISH OIL (FISH OIL) [Concomitant]
  5. MTV (MTV) [Concomitant]
  6. RANITIDINE HYDROCHLORIDE [Concomitant]
  7. POTASSIUM CHLORIDE [Concomitant]
  8. OMEPRAZOLE [Concomitant]
  9. PHENERGAN HCL [Concomitant]
  10. LASIX [Concomitant]
  11. LISINOPRIL [Concomitant]
  12. DEXAMETHASONE [Concomitant]
  13. CALCIUM CARBONATE [Concomitant]
  14. MIRALAX [Concomitant]
  15. ASPIRIN [Concomitant]
  16. CLARITIN [Concomitant]
  17. CYMBALTA [Concomitant]
  18. OXYCONTIN [Concomitant]

REACTIONS (1)
  - PNEUMONIA [None]
